FAERS Safety Report 6428327-2 (Version None)
Quarter: 2009Q4

REPORT INFORMATION
  Report Type: 
  Country: None (occurrence: None)
  Receive Date: 20091104
  Receipt Date: 20091104
  Transmission Date: 20100525
  Serious: No
  Sender: FDA-Public Use
  Company Number: None

PATIENT
  Age: 61 Year
  Sex: Male
  Weight: 105.69 kg

DRUGS (2)
  1. PEMETREXED [Suspect]
     Indication: LUNG ADENOCARCINOMA
     Dosage: 1175 MG ONCE IV
     Route: 042
     Dates: start: 20070913, end: 20090515
  2. PEMETREXED [Suspect]
     Indication: METASTASES TO CENTRAL NERVOUS SYSTEM
     Dosage: 1175 MG ONCE IV
     Route: 042
     Dates: start: 20070913, end: 20090515

REACTIONS (2)
  - OEDEMA [None]
  - OLIGURIA [None]
